FAERS Safety Report 8110270-4 (Version None)
Quarter: 2012Q1

REPORT INFORMATION
  Report Type: 
  Country: None (occurrence: None)
  Receive Date: 20120202
  Receipt Date: 20120127
  Transmission Date: 20120608
  Serious: No
  Sender: FDA-Public Use
  Company Number: US-PFIZER INC-2012023486

PATIENT
  Sex: Female
  Weight: 73.469 kg

DRUGS (4)
  1. CELEBREX [Interacting]
     Dosage: 200MG, 1XDAY
  2. LYRICA [Suspect]
     Indication: PAIN
     Dosage: 75 MG, 2X/DAY
     Route: 048
     Dates: start: 20120124, end: 20120126
  3. CLONAZEPAM [Interacting]
     Indication: SLEEP DISORDER
     Dosage: UNK
  4. PERCOCET [Interacting]

REACTIONS (4)
  - MALAISE [None]
  - DRUG INTERACTION [None]
  - URINARY INCONTINENCE [None]
  - FEELING ABNORMAL [None]
